FAERS Safety Report 12757829 (Version 3)
Quarter: 2016Q4

REPORT INFORMATION
  Report Type: Spontaneous
  Country: US (occurrence: US)
  Receive Date: 20160919
  Receipt Date: 20161215
  Transmission Date: 20170207
  Serious: No
  Sender: FDA-Public Use
  Company Number: US-PFIZER INC-2016431919

PATIENT
  Age: 72 Year
  Sex: Female
  Weight: 79.38 kg

DRUGS (24)
  1. PREDNISONE. [Concomitant]
     Active Substance: PREDNISONE
     Dosage: 40 UNK, UNK (40MG FOR THREE DAYS)
     Dates: start: 20160913
  2. PULMICORT TURBUHALER [Concomitant]
     Active Substance: BUDESONIDE
     Dosage: UNK, AS NEEDED
  3. ARTHROTEC [Concomitant]
     Active Substance: DICLOFENAC SODIUM\MISOPROSTOL
     Dosage: 75 MG, UNK
     Dates: start: 201006
  4. VITAMIN D /00107901/ [Concomitant]
     Active Substance: ERGOCALCIFEROL
     Dosage: 5000 IU, DAILY
  5. PREDNISONE. [Concomitant]
     Active Substance: PREDNISONE
     Dosage: 5 MG, UNK
     Dates: start: 20160911
  6. FOLIC ACID. [Concomitant]
     Active Substance: FOLIC ACID
     Dosage: 1 MG, 1X/DAY
  7. RESTASIS [Concomitant]
     Active Substance: CYCLOSPORINE
     Dosage: 0.04 ML, 2X/DAY
     Route: 047
     Dates: start: 201104
  8. ALBUTEROL. [Concomitant]
     Active Substance: ALBUTEROL
     Dosage: UNK, AS NEEDED
  9. VITAMIN C [Concomitant]
     Active Substance: ASCORBIC ACID
     Dosage: 1000 MG, UNK
  10. PREDNISONE. [Concomitant]
     Active Substance: PREDNISONE
     Dosage: 40 UNK, UNK
     Dates: start: 20160912
  11. RESTASIS [Concomitant]
     Active Substance: CYCLOSPORINE
     Dosage: 0.04 ML, 2X/DAY
     Route: 047
     Dates: start: 201601
  12. CENTRUM SILVER [Concomitant]
     Active Substance: MINERALS\VITAMINS
     Dosage: UNK
  13. MOBIC [Concomitant]
     Active Substance: MELOXICAM
     Dosage: 15 MG, UNK
     Dates: start: 200905
  14. XELJANZ [Suspect]
     Active Substance: TOFACITINIB CITRATE
     Indication: RHEUMATOID ARTHRITIS
     Dosage: 5 MG, 2X/DAY
     Route: 048
     Dates: start: 201503, end: 20160926
  15. PREMARIN [Concomitant]
     Active Substance: ESTROGENS, CONJUGATED
     Dosage: 42.5 G, 1X/DAY
  16. PRILOSEC [Concomitant]
     Active Substance: OMEPRAZOLE MAGNESIUM
     Dosage: 20 MG, 1X/DAY
  17. PREDNISONE. [Concomitant]
     Active Substance: PREDNISONE
     Dosage: 5 MG, UNK
     Dates: start: 20160910
  18. OXAPROZIN. [Concomitant]
     Active Substance: OXAPROZIN
     Dosage: 600 MG, UNK
     Dates: start: 200812
  19. FLUORIDE [Concomitant]
     Active Substance: SODIUM FLUORIDE
     Dosage: UNK
  20. ESTRACE [Concomitant]
     Active Substance: ESTRADIOL
     Dosage: 42.5 G, 1X/DAY
  21. PREDNISONE. [Concomitant]
     Active Substance: PREDNISONE
     Dosage: 5 MG, UNK
     Dates: start: 20160909
  22. VOLTAREN [Concomitant]
     Active Substance: DICLOFENAC SODIUM
     Dosage: 75 MG, 2X/DAY
     Dates: start: 2011
  23. ARTHROTEC [Concomitant]
     Active Substance: DICLOFENAC SODIUM\MISOPROSTOL
     Dosage: 75 MG, UNK
     Dates: start: 200603
  24. SULINDAC. [Concomitant]
     Active Substance: SULINDAC
     Dosage: 200 MG, UNK
     Dates: start: 200904

REACTIONS (7)
  - Condition aggravated [Recovered/Resolved]
  - Drug ineffective [Not Recovered/Not Resolved]
  - Peripheral swelling [Not Recovered/Not Resolved]
  - Arthralgia [Unknown]
  - Pain in extremity [Not Recovered/Not Resolved]
  - Back pain [Unknown]
  - Neck pain [Unknown]

NARRATIVE: CASE EVENT DATE: 201608
